FAERS Safety Report 9524570 (Version 2)
Quarter: 2013Q3

REPORT INFORMATION
  Report Type: Spontaneous
  Country: JP (occurrence: JP)
  Receive Date: 20130916
  Receipt Date: 20130916
  Transmission Date: 20140515
  Serious: Yes (Other)
  Sender: FDA-Public Use
  Company Number: PHHY2011JP80357

PATIENT
  Age: 57 Year
  Sex: Male

DRUGS (1)
  1. GLIVEC [Suspect]
     Indication: CHRONIC MYELOID LEUKAEMIA
     Dosage: 400 MG, DAILY
     Route: 048
     Dates: start: 201009, end: 201211

REACTIONS (5)
  - Prinzmetal angina [Recovering/Resolving]
  - Hepatic cancer [Unknown]
  - Second primary malignancy [Unknown]
  - Rash [Unknown]
  - Drug resistance [Unknown]
